FAERS Safety Report 19452815 (Version 1)
Quarter: 2021Q2

REPORT INFORMATION
  Report Type: Spontaneous
  Country: US (occurrence: US)
  Receive Date: 20210623
  Receipt Date: 20210623
  Transmission Date: 20210717
  Serious: No
  Sender: FDA-Public Use
  Company Number: US-ASTRAZENECA-2021A477942

PATIENT
  Age: 22877 Day
  Sex: Female
  Weight: 120.2 kg

DRUGS (2)
  1. BYDUREON [Suspect]
     Active Substance: EXENATIDE
     Route: 058
     Dates: end: 202105
  2. BYDUREON BCISE [Suspect]
     Active Substance: EXENATIDE
     Indication: DIABETES MELLITUS
     Route: 058
     Dates: start: 20210526

REACTIONS (2)
  - Incorrect dose administered [Unknown]
  - Injection site extravasation [Unknown]
